FAERS Safety Report 11257853 (Version 7)
Quarter: 2015Q4

REPORT INFORMATION
  Report Type: Spontaneous
  Country: ES (occurrence: ES)
  Receive Date: 20150710
  Receipt Date: 20151225
  Transmission Date: 20160304
  Serious: Yes (Other)
  Sender: FDA-Public Use
  Company Number: ES-AMGEN-ESPSP2015065756

PATIENT
  Age: 55 Year
  Sex: Female

DRUGS (14)
  1. ENBREL [Suspect]
     Active Substance: ETANERCEPT
     Indication: PSORIATIC ARTHROPATHY
     Dosage: 50 MG, WEEKLY
     Route: 058
     Dates: start: 20150511
  2. METOJECT [Concomitant]
     Active Substance: METHOTREXATE SODIUM
     Indication: PSORIATIC ARTHROPATHY
     Dosage: 1 DF (15), WEEKLY (ONE INJECTION ON MONDAYS)
  3. MASTICAL D [Concomitant]
     Indication: BONE DISORDER
     Dosage: 1 DF (500/800), 1X/DAY
  4. CEMIDON [Concomitant]
     Active Substance: ISONIAZID
     Indication: TUBERCULIN TEST
     Dosage: 300 UNK, 1X/DAY DURING 9 MONTHS
  5. ACFOL [Concomitant]
     Active Substance: FOLIC ACID
     Dosage: 2 DF, WEEKLY
  6. ENBREL [Suspect]
     Active Substance: ETANERCEPT
     Dosage: 50 MG, WEEKLY
     Route: 058
  7. HIDROFEROL [Concomitant]
     Active Substance: CALCIFEDIOL
     Indication: VITAMIN SUPPLEMENTATION
     Dosage: 1 DF, MONTHLY (02/66 MG)
  8. CONDROSULF [Concomitant]
     Active Substance: CHONDROITIN SULFATE (CHICKEN)
     Indication: PROPHYLAXIS
     Dosage: 1 DF, 2X/DAY (EVERY 12 HOURS)
  9. CONDROSULF [Concomitant]
     Active Substance: CHONDROITIN SULFATE (CHICKEN)
     Dosage: 2 DF, 2X/DAY (EVERY 12 HOURS)
  10. ENBREL [Suspect]
     Active Substance: ETANERCEPT
     Dosage: 50 MG, WEEKLY
     Route: 058
  11. URBASON                            /00049601/ [Concomitant]
     Active Substance: METHYLPREDNISOLONE
     Indication: PSORIATIC ARTHROPATHY
     Dosage: 4 MG, 1X/DAY
  12. CELECOXIB. [Concomitant]
     Active Substance: CELECOXIB
     Indication: PAIN
     Dosage: 200 MG, 2X/DAY (EVERY 12 HOURS)
  13. ZALDIAR [Concomitant]
     Active Substance: ACETAMINOPHEN\TRAMADOL HYDROCHLORIDE
     Indication: PAIN
     Dosage: UNK
  14. ALAPANZOL [Concomitant]
     Indication: PROPHYLAXIS
     Dosage: 40 MG, 1X/DAY

REACTIONS (13)
  - Cough [Recovered/Resolved]
  - Pharyngitis [Recovered/Resolved]
  - Drug ineffective [Recovering/Resolving]
  - Injection site pain [Recovered/Resolved]
  - Ear pain [Recovered/Resolved]
  - Wound [Recovering/Resolving]
  - Condition aggravated [Recovering/Resolving]
  - Scab [Recovering/Resolving]
  - Foot deformity [Not Recovered/Not Resolved]
  - Oral herpes [Recovered/Resolved]
  - Psoriatic arthropathy [Recovering/Resolving]
  - Pain in extremity [Not Recovered/Not Resolved]
  - Pain [Not Recovered/Not Resolved]

NARRATIVE: CASE EVENT DATE: 2015
